FAERS Safety Report 6145763-2 (Version None)
Quarter: 2009Q2

REPORT INFORMATION
  Report Type: 
  Country: None (occurrence: None)
  Receive Date: 20090407
  Receipt Date: 20090330
  Transmission Date: 20091009
  Serious: Yes (Hospitalization)
  Sender: FDA-Public Use
  Company Number: FR-AMGEN-US327323

PATIENT
  Sex: Female
  Weight: 72 kg

DRUGS (5)
  1. ENBREL [Suspect]
     Indication: RHEUMATOID ARTHRITIS
     Dosage: 50 MG TOTAL WEEKLY
     Route: 058
     Dates: start: 20061026, end: 20081126
  2. CORTANCYL [Suspect]
     Indication: RHEUMATOID ARTHRITIS
     Dosage: UNKNOWN
     Route: 048
     Dates: start: 20050801, end: 20090101
  3. ARAVA [Suspect]
     Indication: RHEUMATOID ARTHRITIS
     Dosage: UNKNOWN
     Route: 048
     Dates: start: 20060101, end: 20060101
  4. METHOTREXATE [Suspect]
     Indication: RHEUMATOID ARTHRITIS
     Dosage: UNKNOWN
     Route: 048
     Dates: start: 20050101, end: 20060101
  5. PARACETAMOL [Concomitant]
     Indication: RHEUMATOID ARTHRITIS
     Dosage: 2 TO 3 G
     Route: 048
     Dates: start: 20050610, end: 20081215

REACTIONS (2)
  - DIFFUSE LARGE B-CELL LYMPHOMA STAGE IV [None]
  - REFRACTORY ANAEMIA WITH AN EXCESS OF BLASTS [None]
